FAERS Safety Report 7187148-6 (Version None)
Quarter: 2010Q4

REPORT INFORMATION
  Report Type: 
  Country: None (occurrence: None)
  Receive Date: 20101222
  Receipt Date: 20101209
  Transmission Date: 20110411
  Serious: Yes (Hospitalization)
  Sender: FDA-Public Use
  Company Number: US-ELI_LILLY_AND_COMPANY-US201012003038

PATIENT
  Sex: Female

DRUGS (16)
  1. FORTEO [Suspect]
     Indication: OSTEOPOROSIS
     Dosage: 20 UG, UNK
     Dates: start: 20100907
  2. SANCTURA [Concomitant]
     Dosage: 60 MG, UNKNOWN
  3. LISINOPRIL [Concomitant]
     Dosage: 10 MG, DAILY (1/D)
  4. SYNTHROID [Concomitant]
     Dosage: 0.088 MG, DAILY (1/D)
  5. EFFEXOR [Concomitant]
     Dosage: 150 MG, DAILY (1/D)
  6. NORVASC [Concomitant]
     Dosage: 2.5 MG, DAILY (1/D)
  7. ADVAIR [Concomitant]
     Dosage: 1 PUFF, DAILY
  8. EXELON [Concomitant]
     Dosage: 4.6 MG, UNK
  9. VITAMIN B1 TAB [Concomitant]
     Dosage: 250 MG, DAILY (1/D)
  10. VITAMIN D [Concomitant]
     Dosage: 1000 D/F, 2/D
  11. CALCIUM [Concomitant]
     Dosage: 1000 D/F, 2/D
  12. CENTRUM [Concomitant]
     Dosage: UNK, DAILY (1/D)
  13. ASPIRIN [Concomitant]
     Dosage: 81 MG, DAILY (1/D)
  14. PLAVIX [Concomitant]
     Dosage: 75 MG, DAILY (1/D)
  15. PRAVASTATIN [Concomitant]
     Dosage: 20 MG, UNK
  16. NORTRIPTYLINE [Concomitant]
     Dosage: 10 MG, 2/D

REACTIONS (2)
  - FALL [None]
  - RIB FRACTURE [None]
